FAERS Safety Report 20021882 (Version 1)
Quarter: 2021Q4

REPORT INFORMATION
  Report Type: Report from Study
  Country: US (occurrence: US)
  Receive Date: 20211102
  Receipt Date: 20211102
  Transmission Date: 20220303
  Serious: No
  Sender: FDA-Public Use
  Company Number: US-BIOVITRUM-2021US9690

PATIENT
  Sex: Male
  Weight: 7 kg

DRUGS (18)
  1. SYNAGIS [Suspect]
     Active Substance: PALIVIZUMAB
     Indication: Antiviral prophylaxis
     Route: 030
  2. ASPIRIN [Concomitant]
     Active Substance: ASPIRIN
  3. AQUAPHOR ITCH RELIEF MAXI [Concomitant]
  4. LOSARTAN POTASSIUM/HYDROC [Concomitant]
  5. POLY-VI-SOL/IRON [Concomitant]
  6. SIROLIMUS [Concomitant]
     Active Substance: SIROLIMUS
  7. BACTRIM DS [Concomitant]
     Active Substance: SULFAMETHOXAZOLE\TRIMETHOPRIM
  8. TRIAMCINOLONE ACETONIDE [Concomitant]
     Active Substance: TRIAMCINOLONE ACETONIDE
  9. IMATINIB MESYLATE [Concomitant]
     Active Substance: IMATINIB MESYLATE
  10. PROPIONATE/SA [Concomitant]
  11. TACROLIMUS [Concomitant]
     Active Substance: TACROLIMUS
  12. ORA-PLUS [Concomitant]
  13. FUROSEMIDE [Concomitant]
     Active Substance: FUROSEMIDE
  14. ACYCLOVIR [Concomitant]
     Active Substance: ACYCLOVIR
  15. HYDROCHLOROTHIAZIDE [Concomitant]
     Active Substance: HYDROCHLOROTHIAZIDE
  16. ZOFRAN [Concomitant]
     Active Substance: ONDANSETRON HYDROCHLORIDE
  17. FLUTICASONE [Concomitant]
     Active Substance: FLUTICASONE
  18. FAMOTIDINE [Concomitant]
     Active Substance: FAMOTIDINE

REACTIONS (3)
  - Vomiting [Unknown]
  - Dehydration [Unknown]
  - Pyrexia [Unknown]
